FAERS Safety Report 20571083 (Version 1)
Quarter: 2022Q1

REPORT INFORMATION
  Report Type: Spontaneous
  Country: US (occurrence: US)
  Receive Date: 20220309
  Receipt Date: 20220309
  Transmission Date: 20220423
  Serious: Yes (Disabling)
  Sender: FDA-Public Use
  Company Number: US-HORIZON THERAPEUTICS-HZN-2021-007116

PATIENT

DRUGS (2)
  1. DUEXIS [Suspect]
     Active Substance: FAMOTIDINE\IBUPROFEN
     Indication: Osteoarthritis
     Dosage: 1 DOSAGE FORM (800 MG/26.6), BID
     Route: 048
  2. CEFDINIR [Concomitant]
     Active Substance: CEFDINIR
     Indication: Product used for unknown indication

REACTIONS (7)
  - Gastric disorder [Unknown]
  - Disability [Unknown]
  - Illness [Unknown]
  - Product supply issue [Unknown]
  - Dizziness [Unknown]
  - Hypersensitivity [Unknown]
  - Off label use [Unknown]
